FAERS Safety Report 4815025-1 (Version None)
Quarter: 2005Q4

REPORT INFORMATION
  Report Type: 
  Country: None (occurrence: None)
  Receive Date: 20051028
  Receipt Date: 20051020
  Transmission Date: 20060501
  Serious: Yes (Other)
  Sender: FDA-Public Use
  Company Number: SK-ABBOTT-05P-260-0314999-00

PATIENT
  Sex: Male
  Weight: 81 kg

DRUGS (4)
  1. KLACID I.V. [Suspect]
     Indication: PNEUMONIA
     Route: 042
     Dates: start: 20051011, end: 20051013
  2. AMBROXOL HYDROCHLORIDE [Concomitant]
     Indication: DRUG USE FOR UNKNOWN INDICATION
     Route: 065
  3. NASAL DROPS [Concomitant]
     Indication: DRUG USE FOR UNKNOWN INDICATION
     Route: 045
  4. INFUSION SOLUTION [Concomitant]
     Indication: DRUG USE FOR UNKNOWN INDICATION
     Route: 065

REACTIONS (3)
  - INFUSION SITE ERYTHEMA [None]
  - INJECTION SITE ERYTHEMA [None]
  - INJECTION SITE PHLEBITIS [None]
